FAERS Safety Report 14358184 (Version 1)
Quarter: 2018Q1

REPORT INFORMATION
  Report Type: Spontaneous
  Country: US (occurrence: US)
  Receive Date: 20180105
  Receipt Date: 20180105
  Transmission Date: 20180509
  Serious: No
  Sender: FDA-Public Use
  Company Number: US-GE HEALTHCARE LIFE SCIENCES-2018CSU000041

PATIENT
  Age: 22 Month
  Sex: Female

DRUGS (3)
  1. OPTISON [Suspect]
     Active Substance: ALBUMIN HUMAN
     Indication: VESICOURETERIC REFLUX
     Dosage: UNK UNK, SINGLE
     Route: 043
  2. NORMAL SALINE [Concomitant]
     Active Substance: SODIUM CHLORIDE
     Indication: VESICOURETERIC REFLUX
     Dosage: UNK, SINGLE
     Route: 043
  3. CYSTO-CONRAY II [Concomitant]
     Active Substance: IOTHALAMATE MEGLUMINE
     Indication: VESICOURETERIC REFLUX
     Route: 043

REACTIONS (2)
  - Drug ineffective [Recovered/Resolved]
  - No adverse event [Recovered/Resolved]
